FAERS Safety Report 20837245 (Version 1)
Quarter: 2022Q2

REPORT INFORMATION
  Report Type: Spontaneous
  Country: US (occurrence: US)
  Receive Date: 20220517
  Receipt Date: 20220517
  Transmission Date: 20220721
  Serious: No
  Sender: FDA-Public Use
  Company Number: US-ALLERGAN-2129200US

PATIENT
  Sex: Female
  Weight: 61.224 kg

DRUGS (3)
  1. ASACOL HD [Suspect]
     Active Substance: MESALAMINE
     Indication: Crohn^s disease
     Dosage: 800 MG, BID
     Route: 048
     Dates: start: 2016, end: 2016
  2. LISINOPRIL [Concomitant]
     Active Substance: LISINOPRIL
     Indication: Hypertension
     Dosage: 2.5 MG
     Dates: start: 2020
  3. DIOVAN [Concomitant]
     Active Substance: VALSARTAN
     Indication: Hypertension
     Dosage: UNK UNK, QD

REACTIONS (3)
  - Inappropriate schedule of product administration [Unknown]
  - Product solubility abnormal [Unknown]
  - Product size issue [Unknown]

NARRATIVE: CASE EVENT DATE: 20160101
